FAERS Safety Report 9068537 (Version 1)
Quarter: 2013Q1

REPORT INFORMATION
  Report Type: Spontaneous
  Country: IN (occurrence: IN)
  Receive Date: 20130206
  Receipt Date: 20130206
  Transmission Date: 20140127
  Serious: Yes (Other)
  Sender: FDA-Public Use
  Company Number: PHHY2013IN008499

PATIENT
  Age: 15 Year
  Sex: Male

DRUGS (4)
  1. VALPROIC ACID [Suspect]
     Indication: EPILEPSY
     Dosage: 2400 MG (80 MG/ KG) DAILY
  2. VALPROIC ACID [Suspect]
     Dosage: 1200 MG (40 MG/KG), DAILY
  3. PHENYTOIN [Concomitant]
     Indication: EPILEPSY
     Dosage: 200 MG, (7 MG/KG), DAILY
  4. CLONAZEPAM [Concomitant]
     Indication: EPILEPSY
     Dosage: 0.5 MG, DAILY

REACTIONS (8)
  - Subgaleal haematoma [Recovering/Resolving]
  - Skin swelling [Recovering/Resolving]
  - Eye swelling [Recovering/Resolving]
  - Fall [Recovering/Resolving]
  - Convulsion [Recovering/Resolving]
  - Pallor [Recovering/Resolving]
  - Toxicity to various agents [Recovering/Resolving]
  - Anaemia [Recovering/Resolving]
